FAERS Safety Report 7419469-3 (Version None)
Quarter: 2011Q1

REPORT INFORMATION
  Report Type: 
  Country: None (occurrence: None)
  Receive Date: 20110302
  Receipt Date: 20101026
  Transmission Date: 20110831
  Serious: No
  Sender: FDA-Public Use
  Company Number: 021261

PATIENT
  Sex: Male
  Weight: 70.3 kg

DRUGS (2)
  1. BALSALAZIDE DISODIUM [Concomitant]
  2. CIMZIA [Suspect]
     Indication: COLITIS ULCERATIVE
     Dosage: 400 MG 1X/28 DAYS, STRENGTH 200 MG SUBCUTANEOUS
     Route: 058

REACTIONS (2)
  - OFF LABEL USE [None]
  - DRUG INEFFECTIVE [None]
